FAERS Safety Report 17128383 (Version 1)
Quarter: 2019Q4

REPORT INFORMATION
  Report Type: Report from Study
  Country: US (occurrence: US)
  Receive Date: 20191209
  Receipt Date: 20191209
  Transmission Date: 20200122
  Serious: Yes (Other)
  Sender: FDA-Public Use
  Company Number: US-MYLANLABS-2019M1117566

PATIENT
  Age: 45 Year
  Sex: Female
  Weight: 132 kg

DRUGS (1)
  1. GLATIRAMER ACETATE INJECTION [Suspect]
     Active Substance: GLATIRAMER ACETATE
     Indication: MULTIPLE SCLEROSIS
     Dosage: UNK, 3XW
     Dates: start: 2019

REACTIONS (3)
  - Multiple sclerosis [Unknown]
  - Fall [Not Recovered/Not Resolved]
  - Ligament sprain [Not Recovered/Not Resolved]

NARRATIVE: CASE EVENT DATE: 2019
